FAERS Safety Report 4431238-5 (Version None)
Quarter: 2004Q3

REPORT INFORMATION
  Report Type: 
  Country: None (occurrence: None)
  Receive Date: 20040824
  Receipt Date: 20040811
  Transmission Date: 20050211
  Serious: Yes (Other)
  Sender: FDA-Public Use
  Company Number: US-AMGEN-US086897

PATIENT
  Sex: Female
  Weight: 59.5 kg

DRUGS (11)
  1. EPOGEN [Suspect]
     Indication: DIALYSIS
     Route: 058
     Dates: start: 20030324, end: 20040728
  2. SYNTHROID [Concomitant]
  3. IMURAN [Concomitant]
     Dates: start: 19920101, end: 20020101
  4. CYCLOSPORINE [Concomitant]
     Dates: start: 19920101, end: 20020101
  5. LANOXIN [Concomitant]
  6. DIATX [Concomitant]
  7. RENAGEL [Concomitant]
  8. TOPROL-XL [Concomitant]
  9. DILTIAZEM [Concomitant]
  10. PREVACID [Concomitant]
  11. TEMAZEPAM [Concomitant]

REACTIONS (2)
  - APLASIA PURE RED CELL [None]
  - PLATELET COUNT DECREASED [None]
